FAERS Safety Report 12788150 (Version 2)
Quarter: 2017Q4

REPORT INFORMATION
  Report Type: Spontaneous
  Country: US (occurrence: US)
  Receive Date: 20160928
  Receipt Date: 20171020
  Transmission Date: 20180320
  Serious: No
  Sender: FDA-Public Use
  Company Number: US-TEVA-696013USA

PATIENT
  Sex: Female

DRUGS (1)
  1. SPRINTEC [Suspect]
     Active Substance: ETHINYL ESTRADIOL\NORGESTIMATE
     Route: 065
     Dates: start: 20160801, end: 20160831

REACTIONS (9)
  - Fatigue [Unknown]
  - Headache [Recovered/Resolved]
  - Pyrexia [Recovered/Resolved]
  - Vomiting [Recovered/Resolved]
  - Nausea [Unknown]
  - Chromaturia [Recovered/Resolved]
  - Dizziness [Unknown]
  - Asthenia [Unknown]
  - Chills [Recovered/Resolved]

NARRATIVE: CASE EVENT DATE: 201608
